FAERS Safety Report 9058430 (Version 4)
Quarter: 2023Q1

REPORT INFORMATION
  Report Type: Spontaneous
  Country: NO (occurrence: NO)
  Receive Date: 20130211
  Receipt Date: 20230130
  Transmission Date: 20230417
  Serious: Yes (Other)
  Sender: FDA-Public Use
  Company Number: NO-ELI_LILLY_AND_COMPANY-NO201302000524

PATIENT
  Sex: Female

DRUGS (1)
  1. ZYPREXA [Suspect]
     Active Substance: OLANZAPINE
     Indication: Psychotic disorder
     Dosage: UNK UNK, DAILY
     Route: 065
     Dates: start: 2000, end: 2007

REACTIONS (3)
  - Tooth loss [Unknown]
  - Dry mouth [Unknown]
  - Weight increased [Unknown]

NARRATIVE: CASE EVENT DATE: 20030101
